FAERS Safety Report 4929293-9 (Version None)
Quarter: 2006Q1

REPORT INFORMATION
  Report Type: 
  Country: None (occurrence: None)
  Receive Date: 20060223
  Receipt Date: 20060131
  Transmission Date: 20060701
  Serious: Yes (Hospitalization, Other)
  Sender: FDA-Public Use
  Company Number: US200602000188

PATIENT
  Sex: Female

DRUGS (8)
  1. HUMALOG [Suspect]
     Indication: DIABETES MELLITUS
     Dates: start: 19910101
  2. HUMULIN N [Suspect]
     Indication: DIABETES MELLITUS
     Dates: start: 19910101
  3. LOPID [Concomitant]
  4. LOPRESSOR [Concomitant]
  5. LASIX [Concomitant]
  6. NITRO PATCH (GLYCERYL TRINITRATE) [Concomitant]
  7. ASA (ASPIRIN (ACETYLSALICYLIC ACID) CAPSULE [Concomitant]
  8. ANTIHYPERTENSIVE AGENT (ANTIHYPERTENSIVE AGENT UNKNOWN FORMULATION) [Concomitant]

REACTIONS (5)
  - CATARACT [None]
  - PHARMACEUTICAL PRODUCT COMPLAINT [None]
  - RETINOPATHY [None]
  - TRIPLE VESSEL BYPASS GRAFT [None]
  - VISUAL ACUITY REDUCED [None]
